FAERS Safety Report 5367123-4 (Version None)
Quarter: 2007Q2

REPORT INFORMATION
  Report Type: 
  Country: None (occurrence: None)
  Receive Date: 20070622
  Receipt Date: 20060720
  Transmission Date: 20071010
  Serious: No
  Sender: FDA-Public Use
  Company Number: US-BRISTOL-MYERS SQUIBB COMPANY-13449046

PATIENT
  Age: 54 Year
  Sex: Male
  Weight: 102 kg

DRUGS (5)
  1. CARBIDOPA AND LEVODOPA [Suspect]
     Dates: end: 20060301
  2. XANAX [Concomitant]
  3. ANAFRANIL [Concomitant]
     Indication: OBSESSIVE-COMPULSIVE DISORDER
  4. ADDERALL 10 [Concomitant]
     Indication: ASTHENIA
  5. RITALIN [Concomitant]
     Indication: ASTHENIA

REACTIONS (1)
  - DRUG TOLERANCE [None]
